FAERS Safety Report 7037642-3 (Version None)
Quarter: 2010Q4

REPORT INFORMATION
  Report Type: 
  Country: None (occurrence: None)
  Receive Date: 20101011
  Receipt Date: 20100830
  Transmission Date: 20110411
  Serious: Yes (Death, Hospitalization, Other)
  Sender: FDA-Public Use
  Company Number: US-BAXTER-2008BH009162

PATIENT
  Age: 6 Month
  Sex: Male
  Weight: 8 kg

DRUGS (35)
  1. HEPARIN SODIUM INJECTION [Suspect]
     Indication: CENTRAL VENOUS CATHETERISATION
     Route: 042
     Dates: start: 20070629, end: 20071119
  2. HEPARIN SODIUM INJECTION [Suspect]
     Indication: INTRAVENOUS CATHETER MANAGEMENT
     Route: 042
     Dates: start: 20070629, end: 20071119
  3. HEPARIN SODIUM INJECTION [Suspect]
     Indication: PARENTERAL NUTRITION
     Route: 042
     Dates: start: 20070629, end: 20071119
  4. HEPARIN SODIUM INJECTION [Suspect]
     Route: 042
     Dates: start: 20070927, end: 20070930
  5. HEPARIN SODIUM INJECTION [Suspect]
     Route: 042
     Dates: start: 20070927, end: 20070930
  6. HEPARIN SODIUM INJECTION [Suspect]
     Route: 042
     Dates: start: 20070927, end: 20070930
  7. HEPARIN SODIUM INJECTION [Suspect]
     Route: 042
     Dates: start: 20070929, end: 20071002
  8. HEPARIN SODIUM INJECTION [Suspect]
     Route: 042
     Dates: start: 20070929, end: 20071002
  9. HEPARIN SODIUM INJECTION [Suspect]
     Route: 042
     Dates: start: 20070929, end: 20071002
  10. HEPARIN SODIUM INJECTION [Suspect]
     Route: 042
     Dates: start: 20070801
  11. HEPARIN SODIUM INJECTION [Suspect]
     Route: 042
     Dates: start: 20070628, end: 20071119
  12. PHENOBARBITAL [Concomitant]
     Indication: PRODUCT USED FOR UNKNOWN INDICATION
     Route: 065
  13. PEPCID [Concomitant]
     Indication: PRODUCT USED FOR UNKNOWN INDICATION
     Route: 065
  14. ZOFRAN [Concomitant]
     Indication: PRODUCT USED FOR UNKNOWN INDICATION
     Route: 065
  15. GRANULOCYTE COLONY STIMULATING FACTOR [Concomitant]
     Indication: PRODUCT USED FOR UNKNOWN INDICATION
     Route: 065
  16. SALINE [Concomitant]
     Indication: PRODUCT USED FOR UNKNOWN INDICATION
     Route: 065
  17. NYSTATIN [Concomitant]
     Indication: PRODUCT USED FOR UNKNOWN INDICATION
     Route: 065
  18. DEXAMETHASONE [Concomitant]
     Indication: PRODUCT USED FOR UNKNOWN INDICATION
     Route: 048
  19. CISPLATIN [Concomitant]
     Indication: CHEMOTHERAPY
     Route: 065
  20. VINCRISTINE [Concomitant]
     Indication: CHEMOTHERAPY
     Route: 065
  21. ETOPOSIDE [Concomitant]
     Indication: CHEMOTHERAPY
     Route: 065
  22. CYTOXAN [Concomitant]
     Indication: CHEMOTHERAPY
     Route: 065
  23. CARBOPLATIN [Concomitant]
     Indication: CHEMOTHERAPY
     Route: 065
  24. KEFLEX [Concomitant]
     Indication: WOUND INFECTION
     Route: 048
  25. ACTIVASE [Concomitant]
     Indication: MEDICAL DEVICE COMPLICATION
     Route: 042
  26. SIMILAC [Concomitant]
     Indication: PRODUCT USED FOR UNKNOWN INDICATION
     Route: 065
  27. CLINDAMYCIN [Concomitant]
     Indication: PRODUCT USED FOR UNKNOWN INDICATION
     Route: 042
  28. CYCLOPHOSPHAMIDE [Concomitant]
     Indication: PRODUCT USED FOR UNKNOWN INDICATION
     Route: 042
  29. FAMOTIDINE [Concomitant]
     Indication: PRODUCT USED FOR UNKNOWN INDICATION
     Route: 065
  30. NEUPOGEN [Concomitant]
     Indication: PRODUCT USED FOR UNKNOWN INDICATION
     Route: 065
  31. FUROSEMIDE [Concomitant]
     Indication: PRODUCT USED FOR UNKNOWN INDICATION
     Route: 065
  32. MESNA [Concomitant]
     Indication: PRODUCT USED FOR UNKNOWN INDICATION
     Route: 065
  33. ONDANSETRON [Concomitant]
     Indication: PRODUCT USED FOR UNKNOWN INDICATION
     Route: 065
  34. PENTAMIDINE ISETHIONATE [Concomitant]
     Indication: PRODUCT USED FOR UNKNOWN INDICATION
     Route: 065
  35. HYDRALAZINE HCL [Concomitant]
     Indication: PRODUCT USED FOR UNKNOWN INDICATION
     Route: 065

REACTIONS (17)
  - CYANOSIS [None]
  - DIARRHOEA [None]
  - FAILURE TO THRIVE [None]
  - HYPERTENSION [None]
  - HYPOTENSION [None]
  - INCISION SITE INFECTION [None]
  - LUNG DISORDER [None]
  - NEUTROPENIA [None]
  - PETECHIAE [None]
  - PNEUMONIA [None]
  - PYREXIA [None]
  - RENAL FAILURE [None]
  - RESPIRATORY DISTRESS [None]
  - RESPIRATORY FAILURE [None]
  - TACHYCARDIA [None]
  - TACHYPNOEA [None]
  - THROMBOCYTOPENIA [None]
